FAERS Safety Report 6406233-7 (Version None)
Quarter: 2009Q4

REPORT INFORMATION
  Report Type: 
  Country: None (occurrence: None)
  Receive Date: 20091019
  Receipt Date: 20091005
  Transmission Date: 20100525
  Serious: Yes (Hospitalization, Other)
  Sender: FDA-Public Use
  Company Number: PHEH2009US13071

PATIENT
  Sex: Female

DRUGS (2)
  1. EXJADE [Suspect]
     Dosage: 1000 UNK, DAILY
     Dates: start: 20070514
  2. EXJADE [Suspect]
     Dosage: ONE 500 MG TABLET
     Route: 048

REACTIONS (4)
  - ANAEMIA [None]
  - CARDIAC FAILURE CONGESTIVE [None]
  - MEMORY IMPAIRMENT [None]
  - SPINAL DISORDER [None]
